FAERS Safety Report 5054217-6 (Version None)
Quarter: 2006Q3

REPORT INFORMATION
  Report Type: 
  Country: None (occurrence: None)
  Receive Date: 20060713
  Receipt Date: 20060630
  Transmission Date: 20061208
  Serious: Yes (Hospitalization)
  Sender: FDA-Public Use
  Company Number: T06-AUT-00057-01

PATIENT
  Age: 29 Year
  Sex: Male
  Weight: 96.5 kg

DRUGS (13)
  1. ESCITALOPRAM OXALATE [Suspect]
     Indication: DEPRESSION
     Dosage: 10 MG QD PO
     Route: 048
     Dates: start: 20051119, end: 20051206
  2. ESCITALOPRAM OXALATE [Suspect]
     Indication: DEPRESSION
     Dosage: 10 MG BID PO
     Route: 048
     Dates: start: 20051207
  3. CLOZAPINE [Suspect]
     Indication: SCHIZOPHRENIA, PARANOID TYPE
     Dosage: 200 MG QD PO
     Route: 048
     Dates: start: 20051119, end: 20051121
  4. CLOZAPINE [Suspect]
     Indication: SCHIZOPHRENIA, PARANOID TYPE
     Dosage: 300 MG QD PO
     Route: 048
     Dates: start: 20051122, end: 20051123
  5. CLOZAPINE [Suspect]
     Indication: SCHIZOPHRENIA, PARANOID TYPE
     Dosage: 350 MG QD PO
     Route: 048
     Dates: start: 20051124, end: 20051124
  6. CLOZAPINE [Suspect]
     Indication: SCHIZOPHRENIA, PARANOID TYPE
     Dosage: 500 MG QD PO
     Route: 048
     Dates: start: 20051125, end: 20051129
  7. CLOZAPINE [Suspect]
     Indication: SCHIZOPHRENIA, PARANOID TYPE
     Dosage: 600 MG QD PO
     Route: 048
     Dates: start: 20051130, end: 20051213
  8. CLOZAPINE [Suspect]
     Indication: SCHIZOPHRENIA, PARANOID TYPE
     Dosage: 800 MG QD PO
     Route: 048
     Dates: start: 20051214
  9. AUGMENTIN '125' [Suspect]
     Indication: INFECTION
     Dosage: 3000 MG QD PO
     Route: 048
     Dates: start: 20051121, end: 20051205
  10. SOLIAN (AMISULPRIDE) [Concomitant]
  11. NEXIUM [Concomitant]
  12. AERIUS (DESLORATADINE) [Concomitant]
  13. ZOLPIDEM TARTRATE [Concomitant]

REACTIONS (11)
  - ALANINE AMINOTRANSFERASE INCREASED [None]
  - BLOOD ALKALINE PHOSPHATASE DECREASED [None]
  - BODY TEMPERATURE DECREASED [None]
  - BRAIN OEDEMA [None]
  - DELIRIUM [None]
  - DISORIENTATION [None]
  - DRUG LEVEL INCREASED [None]
  - EOSINOPHIL PERCENTAGE INCREASED [None]
  - HALLUCINATION, VISUAL [None]
  - OBSESSIVE-COMPULSIVE PERSONALITY DISORDER [None]
  - RESTLESSNESS [None]
